FAERS Safety Report 12266647 (Version 1)
Quarter: 2016Q2

REPORT INFORMATION
  Report Type: Spontaneous
  Country: US (occurrence: US)
  Receive Date: 20160414
  Receipt Date: 20160414
  Transmission Date: 20160815
  Serious: No
  Sender: FDA-Public Use
  Company Number: US-TEVA-584952USA

PATIENT
  Age: 69 Year
  Sex: Female

DRUGS (1)
  1. GABAPENTIN. [Suspect]
     Active Substance: GABAPENTIN
     Indication: PAIN
     Route: 065
     Dates: start: 20150721

REACTIONS (9)
  - Product substitution issue [Unknown]
  - Product taste abnormal [Unknown]
  - Abdominal discomfort [Unknown]
  - Dysphagia [Unknown]
  - Pain [Unknown]
  - Dysgeusia [Unknown]
  - Drug ineffective [Unknown]
  - Product size issue [Unknown]
  - Product deposit [Unknown]

NARRATIVE: CASE EVENT DATE: 20150721
